FAERS Safety Report 12152804 (Version 1)
Quarter: 2016Q1

REPORT INFORMATION
  Report Type: Spontaneous
  Country: US (occurrence: US)
  Receive Date: 20160304
  Receipt Date: 20160304
  Transmission Date: 20160526
  Serious: Yes (Hospitalization, Other)
  Sender: FDA-Public Use
  Company Number: US-BIOGEN-2015BI071813

PATIENT
  Age: 30 Year
  Sex: Female

DRUGS (1)
  1. TYSABRI [Suspect]
     Active Substance: NATALIZUMAB
     Indication: MULTIPLE SCLEROSIS
     Route: 042

REACTIONS (4)
  - Retinal detachment [Recovered/Resolved]
  - Extraocular muscle paresis [Not Recovered/Not Resolved]
  - Visual field defect [Not Recovered/Not Resolved]
  - Herpes zoster necrotising retinopathy [Recovered/Resolved]

NARRATIVE: CASE EVENT DATE: 201201
